FAERS Safety Report 5827629-8 (Version None)
Quarter: 2008Q2

REPORT INFORMATION
  Report Type: 
  Country: None (occurrence: None)
  Receive Date: 20080601
  Receipt Date: 20080210
  Transmission Date: 20081010
  Serious: No
  Sender: FDA-Public Use
  Company Number: US200802002787

PATIENT
  Age: 71 Year
  Sex: Female

DRUGS (4)
  1. BYETTA [Suspect]
     Dosage: SUBCUTANEOUS
     Route: 058
     Dates: start: 20070101, end: 20080101
  2. LANTUS [Concomitant]
  3. NOVOLOG [Concomitant]
  4. SYMLIN [Concomitant]

REACTIONS (4)
  - BLOOD GLUCOSE INCREASED [None]
  - FOOD CRAVING [None]
  - HUNGER [None]
  - WEIGHT DECREASED [None]
